FAERS Safety Report 9847246 (Version 1)
Quarter: 2014Q1

REPORT INFORMATION
  Report Type: Spontaneous
  Country: FR (occurrence: FR)
  Receive Date: 20140127
  Receipt Date: 20140127
  Transmission Date: 20141002
  Serious: Yes (Hospitalization)
  Sender: FDA-Public Use
  Company Number: PHHY2014FR007513

PATIENT
  Age: 78 Year
  Sex: Female

DRUGS (8)
  1. BISOPROLOL SANDOZ [Suspect]
     Indication: HYPERTENSION
     Dosage: 1 DF, QD
     Route: 048
     Dates: start: 20130219, end: 20130219
  2. LASILIX [Concomitant]
     Indication: HYPERTENSION
     Dosage: 2 DF, QD
     Dates: start: 2009
  3. KALEORID [Concomitant]
     Indication: HYPOKALAEMIA
     Dosage: 2 DF, QD
     Dates: start: 2009
  4. KARDEGIC [Concomitant]
     Indication: CARDIOVASCULAR EVENT PROPHYLAXIS
     Dosage: 1 DF, QD
     Dates: start: 2009
  5. TAHOR [Concomitant]
     Indication: HYPERCHOLESTEROLAEMIA
     Dosage: 1 DF, QD
     Dates: start: 2009
  6. APROVEL [Concomitant]
     Indication: HYPERTENSION
     Dosage: 1 DF, QD
     Dates: start: 2009
  7. TEMERIT [Concomitant]
     Dates: end: 20130218
  8. TEMERIT [Concomitant]
     Dates: start: 20130226

REACTIONS (3)
  - Cognitive disorder [Recovered/Resolved]
  - Disorientation [Recovered/Resolved]
  - Confusional state [Recovered/Resolved]
